FAERS Safety Report 22128889 (Version 1)
Quarter: 2023Q1

REPORT INFORMATION
  Report Type: Spontaneous
  Country: US (occurrence: US)
  Receive Date: 20230323
  Receipt Date: 20230323
  Transmission Date: 20230418
  Serious: Yes (Other)
  Sender: FDA-Public Use
  Company Number: US-LUPIN PHARMACEUTICALS INC.-2023-02234

PATIENT
  Age: 36 Year

DRUGS (1)
  1. TESTOSTERONE GEL 1.62% [Suspect]
     Active Substance: TESTOSTERONE
     Indication: Transgender hormonal therapy
     Dosage: UNK, BID FOR 7.5 YEARS
     Route: 061

REACTIONS (2)
  - Idiopathic intracranial hypertension [Unknown]
  - Off label use [Recovering/Resolving]
